FAERS Safety Report 4439417-8 (Version None)
Quarter: 2004Q3

REPORT INFORMATION
  Report Type: 
  Country: None (occurrence: None)
  Receive Date: 20040728
  Receipt Date: 20040303
  Transmission Date: 20050211
  Serious: No
  Sender: FDA-Public Use
  Company Number: USA040360846

PATIENT
  Age: 50 Year
  Sex: Male
  Weight: 89 kg

DRUGS (4)
  1. STRATTERA [Suspect]
     Indication: ATTENTION DEFICIT/HYPERACTIVITY DISORDER
     Dosage: 80 MG IN THE MORNING
     Dates: start: 20040227
  2. ZOCOR [Concomitant]
  3. DOSTINEX [Concomitant]
  4. NAPROXEN [Concomitant]

REACTIONS (11)
  - AGITATION [None]
  - BRUXISM [None]
  - DEPRESSED MOOD [None]
  - DISORIENTATION [None]
  - FATIGUE [None]
  - FEELING ABNORMAL [None]
  - IRRITABILITY [None]
  - MOOD SWINGS [None]
  - PAIN IN JAW [None]
  - PARAESTHESIA [None]
  - VERTIGO [None]
